FAERS Safety Report 4282113-0 (Version None)
Quarter: 2004Q1

REPORT INFORMATION
  Report Type: 
  Country: None (occurrence: None)
  Receive Date: 20040130
  Receipt Date: 20030725
  Transmission Date: 20041129
  Serious: No
  Sender: FDA-Public Use
  Company Number: US-BRISTOL-MYERS SQUIBB COMPANY-12336707

PATIENT
  Age: 41 Year
  Sex: Female

DRUGS (6)
  1. TRAZODONE HCL [Suspect]
     Indication: DEPRESSED MOOD
     Dosage: TRAZODONE 50MG, 1/2 AT HS FOR 2 WEEKS THEN 1 AT HS. INCREASE TO 50MG 1+1/2 HS, THEN STOPPED.
     Route: 048
     Dates: start: 19980223, end: 19980101
  2. TRAZODONE HCL [Suspect]
     Indication: CRYING
     Dosage: TRAZODONE 50MG, 1/2 AT HS FOR 2 WEEKS THEN 1 AT HS. INCREASE TO 50MG 1+1/2 HS, THEN STOPPED.
     Route: 048
     Dates: start: 19980223, end: 19980101
  3. TRAZODONE HCL [Suspect]
     Indication: MOOD SWINGS
     Dosage: TRAZODONE 50MG, 1/2 AT HS FOR 2 WEEKS THEN 1 AT HS. INCREASE TO 50MG 1+1/2 HS, THEN STOPPED.
     Route: 048
     Dates: start: 19980223, end: 19980101
  4. SERZONE [Concomitant]
     Indication: DEPRESSED MOOD
     Dosage: 150MG, 1/2 PC BID FOR 2 WEEKS, THEN 1 PC BID.
     Route: 048
     Dates: start: 19980228
  5. SERZONE [Concomitant]
     Indication: CRYING
     Dosage: 150MG, 1/2 PC BID FOR 2 WEEKS, THEN 1 PC BID.
     Route: 048
     Dates: start: 19980228
  6. SERZONE [Concomitant]
     Indication: MOOD SWINGS
     Dosage: 150MG, 1/2 PC BID FOR 2 WEEKS, THEN 1 PC BID.
     Route: 048
     Dates: start: 19980228

REACTIONS (2)
  - BRONCHITIS [None]
  - PRURITUS [None]
